FAERS Safety Report 16163163 (Version 2)
Quarter: 2019Q3

REPORT INFORMATION
  Report Type: Spontaneous
  Country: US (occurrence: US)
  Receive Date: 20190405
  Receipt Date: 20190923
  Transmission Date: 20191004
  Serious: No
  Sender: FDA-Public Use
  Company Number: US-ALLERGAN-1905393US

PATIENT
  Sex: Male
  Weight: 118 kg

DRUGS (3)
  1. LISINOPRIL. [Concomitant]
     Active Substance: LISINOPRIL
     Indication: HYPERTENSION
     Route: 048
  2. ZENPEP [Suspect]
     Active Substance: PANCRELIPASE AMYLASE\PANCRELIPASE LIPASE\PANCRELIPASE PROTEASE
     Indication: PANCREATIC FAILURE
     Dosage: 20,000 3 PILLS A DAY WITH A MEAL
     Route: 048
     Dates: end: 20190204
  3. ZENPEP [Suspect]
     Active Substance: PANCRELIPASE AMYLASE\PANCRELIPASE LIPASE\PANCRELIPASE PROTEASE
     Dosage: 20,000 3 PILLS A DAY WITH A MEAL
     Route: 048
     Dates: start: 201812

REACTIONS (2)
  - Hyperhidrosis [Recovered/Resolved]
  - Drug ineffective [Unknown]
